FAERS Safety Report 20710268 (Version 1)
Quarter: 2022Q2

REPORT INFORMATION
  Report Type: Spontaneous
  Country: PL (occurrence: None)
  Receive Date: 20220414
  Receipt Date: 20220414
  Transmission Date: 20220721
  Serious: Yes (Other)
  Sender: FDA-Public Use
  Company Number: PL-Fresenius Kabi-FK202204366

PATIENT
  Age: 45 Year
  Sex: Male

DRUGS (1)
  1. SODIUM CHLORIDE [Suspect]
     Active Substance: SODIUM CHLORIDE
     Indication: Drug toxicity prophylaxis
     Route: 042

REACTIONS (1)
  - Extravasation of urine [Recovered/Resolved]
